FAERS Safety Report 5473628-8 (Version None)
Quarter: 2007Q3

REPORT INFORMATION
  Report Type: 
  Country: None (occurrence: None)
  Receive Date: 20070831
  Receipt Date: 20070416
  Transmission Date: 20080115
  Serious: No
  Sender: FDA-Public Use
  Company Number: 240267

PATIENT
  Age: 88 Year
  Sex: Female

DRUGS (4)
  1. LUCENTIS [Suspect]
     Indication: MACULAR DEGENERATION
     Dates: start: 20070313
  2. DAILY VITAMIN (VITAMIN NOS) [Concomitant]
  3. CALCIUM (CALCIUMNOS) [Concomitant]
  4. VITAMIN A (NATURAL) CAP [Concomitant]

REACTIONS (1)
  - VISUAL DISTURBANCE [None]
